FAERS Safety Report 5015000-0 (Version None)
Quarter: 2006Q2

REPORT INFORMATION
  Report Type: 
  Country: None (occurrence: None)
  Receive Date: 20060425
  Receipt Date: 20050413
  Transmission Date: 20061013
  Serious: Yes (Other)
  Sender: FDA-Public Use
  Company Number: WAES 0504USA01929

PATIENT
  Age: 4 Year
  Sex: Male

DRUGS (1)
  1. SINGULAIR [Suspect]
     Dosage: 4 MG/DAILY/PO
     Route: 048
     Dates: end: 20050101

REACTIONS (1)
  - PSYCHOMOTOR HYPERACTIVITY [None]
